FAERS Safety Report 9840408 (Version 1)
Quarter: 2014Q1

REPORT INFORMATION
  Report Type: Report from Study
  Country: US (occurrence: US)
  Receive Date: 20140124
  Receipt Date: 20140124
  Transmission Date: 20141002
  Serious: Yes (Death)
  Sender: FDA-Public Use
  Company Number: US-ROCHE-1338378

PATIENT
  Sex: Male

DRUGS (7)
  1. RITUXAN [Suspect]
     Indication: PLASMA CELL MYELOMA
     Route: 065
  2. RITUXAN [Suspect]
     Route: 065
     Dates: start: 20130319
  3. RITUXAN [Suspect]
     Route: 065
     Dates: start: 20130402
  4. RITUXAN [Suspect]
     Route: 065
     Dates: start: 20130424
  5. RITUXAN [Suspect]
     Route: 065
     Dates: start: 20130510
  6. CYTOXAN [Concomitant]
  7. CARFILZOMIB [Concomitant]

REACTIONS (1)
  - Death [Fatal]
